FAERS Safety Report 19724611 (Version 3)
Quarter: 2021Q4

REPORT INFORMATION
  Report Type: Report from Study
  Country: FR (occurrence: FR)
  Receive Date: 20210819
  Receipt Date: 20211116
  Transmission Date: 20220304
  Serious: Yes (Life-Threatening, Hospitalization, Other)
  Sender: FDA-Public Use
  Company Number: FR-EMA-DD-20210303-SHUKLA_V-083425

PATIENT
  Age: 56 Year
  Sex: Male
  Weight: 100 kg

DRUGS (17)
  1. METHOTREXATE [Suspect]
     Active Substance: METHOTREXATE
     Indication: Psoriasis
     Dosage: 15 MILLIGRAM, QW
     Route: 048
     Dates: start: 2013, end: 2013
  2. STELARA [Suspect]
     Active Substance: USTEKINUMAB
     Indication: Psoriasis
     Dosage: 45 MILLIGRAM, Q3MONTHS (45 MG ONCE EVERY 12 WEEKS)
     Route: 058
     Dates: start: 20170226, end: 20180110
  3. STELARA [Suspect]
     Active Substance: USTEKINUMAB
     Dosage: 45 MILLIGRAM, Q28D (45 MG ONCE EVERY 4 WEEKS)
     Route: 058
     Dates: start: 20170126, end: 20170226
  4. STELARA [Suspect]
     Active Substance: USTEKINUMAB
     Indication: Psoriasis
     Dosage: 45 MILLIGRAM (45 MG ONCE EVERY 14 WEEKS)
     Route: 048
     Dates: start: 20180110, end: 20180418
  5. CLOBETASOL PROPIONATE [Suspect]
     Active Substance: CLOBETASOL PROPIONATE
     Indication: Psoriasis
     Dosage: UNK
     Route: 065
     Dates: start: 20161219
  6. CLOBETASOL PROPIONATE [Suspect]
     Active Substance: CLOBETASOL PROPIONATE
     Dosage: UNK
     Route: 065
     Dates: start: 20180108, end: 20190408
  7. ACITRETIN [Suspect]
     Active Substance: ACITRETIN
     Indication: Psoriasis
     Dosage: 80 MILLIGRAM, QW
     Route: 065
     Dates: start: 20130531
  8. CICLOPIROX OLAMINE [Suspect]
     Active Substance: CICLOPIROX OLAMINE
     Indication: Psoriasis
     Dosage: UNK
     Route: 065
     Dates: start: 20161219
  9. CICLOPIROX OLAMINE [Suspect]
     Active Substance: CICLOPIROX OLAMINE
     Dosage: UNK
     Route: 065
     Dates: start: 20180108
  10. HUMIRA [Suspect]
     Active Substance: ADALIMUMAB
     Indication: Psoriasis
     Dosage: 80 MILLIGRAM, QW
     Route: 058
     Dates: start: 20130531, end: 20130630
  11. HUMIRA [Suspect]
     Active Substance: ADALIMUMAB
     Dosage: 40 MILLIGRAM, BIWEEKLY(40 MG, ONCE AT 2 WEEKS  )
     Route: 058
     Dates: start: 20130630, end: 20160928
  12. DAIVOBET [Suspect]
     Active Substance: BETAMETHASONE DIPROPIONATE\CALCIPOTRIENE
     Indication: Psoriasis
     Dosage: UNK
     Route: 065
     Dates: start: 20161216
  13. DAIVOBET [Suspect]
     Active Substance: BETAMETHASONE DIPROPIONATE\CALCIPOTRIENE
     Dosage: UNK
     Route: 065
     Dates: start: 20161219
  14. DAIVOBET [Suspect]
     Active Substance: BETAMETHASONE DIPROPIONATE\CALCIPOTRIENE
     Dosage: UNK
     Route: 065
     Dates: start: 20190408
  15. GLYCERIN\MINERAL OIL\PETROLATUM [Suspect]
     Active Substance: GLYCERIN\MINERAL OIL\PETROLATUM
     Indication: Psoriasis
     Dosage: UNK
     Route: 065
     Dates: start: 20161219
  16. TALTZ [Suspect]
     Active Substance: IXEKIZUMAB
     Indication: Psoriasis
     Dosage: 160 MILLIGRAM, BIWEEKLY (160 MG EVERY 2 WEEKS )
     Route: 058
  17. TALTZ [Suspect]
     Active Substance: IXEKIZUMAB
     Indication: Myocardial infarction

REACTIONS (3)
  - Angioplasty [Recovered/Resolved]
  - Myocardial infarction [Recovered/Resolved]
  - Type 2 diabetes mellitus [Recovered/Resolved]

NARRATIVE: CASE EVENT DATE: 20180101
